FAERS Safety Report 23885868 (Version 3)
Quarter: 2025Q1

REPORT INFORMATION
  Report Type: Spontaneous
  Country: DE (occurrence: DE)
  Receive Date: 20240522
  Receipt Date: 20250128
  Transmission Date: 20250409
  Serious: No
  Sender: ASTELLAS
  Company Number: DE-ASTELLAS-2024US014100

PATIENT
  Age: 71 Year
  Sex: Female

DRUGS (1)
  1. VEOZAH [Suspect]
     Active Substance: FEZOLINETANT
     Indication: Hot flush
     Route: 065
     Dates: start: 202403

REACTIONS (1)
  - Aspartate aminotransferase increased [Unknown]
